FAERS Safety Report 4871603-5 (Version None)
Quarter: 2005Q4

REPORT INFORMATION
  Report Type: 
  Country: None (occurrence: None)
  Receive Date: 20051230
  Receipt Date: 20051222
  Transmission Date: 20060501
  Serious: Yes (Other)
  Sender: FDA-Public Use
  Company Number: TCI2005A04836

PATIENT
  Age: 56 Year
  Sex: Male

DRUGS (5)
  1. PIOGLITAZONE HCL [Suspect]
     Indication: DIABETES MELLITUS NON-INSULIN-DEPENDENT
     Dosage: 15 MG (15 MG, 1 IN 1 D); PER ORAL, 30 MG (30 MG, 1 IN 1 D); ORAL
     Route: 048
     Dates: start: 20021126, end: 20030217
  2. PIOGLITAZONE HCL [Suspect]
     Indication: DIABETES MELLITUS NON-INSULIN-DEPENDENT
     Dosage: 15 MG (15 MG, 1 IN 1 D); PER ORAL, 30 MG (30 MG, 1 IN 1 D); ORAL
     Route: 048
     Dates: start: 20030218
  3. GLIMICRON (GLICLAZIDE) [Concomitant]
  4. PRAVASTATIN [Concomitant]
  5. FAMOTIDINE [Concomitant]

REACTIONS (1)
  - GASTRIC CANCER [None]
